FAERS Safety Report 10391741 (Version 1)
Quarter: 2014Q3

REPORT INFORMATION
  Report Type: Spontaneous
  Country: IE (occurrence: IE)
  Receive Date: 20140819
  Receipt Date: 20140819
  Transmission Date: 20150326
  Serious: Yes (Death)
  Sender: FDA-Public Use
  Company Number: IE-AMGEN-IRLSP2014062540

PATIENT
  Age: 77 Year
  Sex: Male

DRUGS (15)
  1. VALOID                             /00014902/ [Concomitant]
     Active Substance: CYCLIZINE HYDROCHLORIDE
     Dosage: UNK
  2. PREDNISOLONE. [Concomitant]
     Active Substance: PREDNISOLONE
     Dosage: 5 MG, BD
  3. RAMILO [Concomitant]
     Active Substance: RAMIPRIL
     Dosage: 2.5 MG, UNK
  4. DILIZEM [Concomitant]
     Dosage: 90 MG, BD
  5. FUROSEMIDE. [Concomitant]
     Active Substance: FUROSEMIDE
     Dosage: 40 MG, UNK
  6. TRAMADOL [Concomitant]
     Active Substance: TRAMADOL
     Dosage: UNK UNK, AS NECESSARY
  7. BISOP [Concomitant]
     Dosage: 2.5 MG, UNK
  8. MYCOSTATIN [Concomitant]
     Active Substance: NYSTATIN
     Dosage: UNK
  9. DEXAMETHASONE. [Concomitant]
     Active Substance: DEXAMETHASONE
     Dosage: 4 MG, BD FOR 2 DAYS POST CHEMOTHERAPY
  10. ATORVASTATIN [Concomitant]
     Active Substance: ATORVASTATIN
     Dosage: 10 MG, UNK
  11. NEULASTA [Suspect]
     Active Substance: PEGFILGRASTIM
     Indication: PROSTATE CANCER
     Dosage: 6MG/0.6MLS POST CHEMO EVERY THREE WEEKS
     Route: 058
     Dates: start: 20140407
  12. INNOHEP [Concomitant]
     Active Substance: TINZAPARIN SODIUM
     Dosage: UNK
  13. KIN [Concomitant]
     Dosage: UNK
  14. MOTILIUM [Concomitant]
     Active Substance: DOMPERIDONE
     Dosage: UNK UNK, AS NECESSARY
  15. EMAZOLE [Concomitant]
     Dosage: 40 MG, UNK

REACTIONS (1)
  - Death [Fatal]
